FAERS Safety Report 6680336-4 (Version None)
Quarter: 2010Q2

REPORT INFORMATION
  Report Type: 
  Country: None (occurrence: None)
  Receive Date: 20100412
  Receipt Date: 20100406
  Transmission Date: 20101027
  Serious: Yes (Hospitalization)
  Sender: FDA-Public Use
  Company Number: SP02870

PATIENT
  Age: 79 Year
  Sex: Male

DRUGS (1)
  1. MOVIPREP [Suspect]
     Indication: BOWEL PREPARATION
     Dosage: (1 LIT), ORAL
     Route: 048
     Dates: start: 20100328, end: 20100328

REACTIONS (4)
  - DEHYDRATION [None]
  - RENAL DISORDER [None]
  - SMALL INTESTINAL OBSTRUCTION [None]
  - SYNCOPE [None]
